FAERS Safety Report 5607300-8 (Version None)
Quarter: 2008Q1

REPORT INFORMATION
  Report Type: 
  Country: None (occurrence: None)
  Receive Date: 20080130
  Receipt Date: 20080121
  Transmission Date: 20080703
  Serious: Yes (Hospitalization)
  Sender: FDA-Public Use
  Company Number: US-JNJFOC-20080105498

PATIENT
  Sex: Female
  Weight: 74.84 kg

DRUGS (4)
  1. DURAGESIC-100 [Suspect]
     Route: 062
  2. DURAGESIC-100 [Suspect]
     Indication: PAIN
     Route: 062
  3. VICODIN [Concomitant]
     Indication: BREAKTHROUGH PAIN
     Route: 048
  4. XANAX [Concomitant]
     Indication: PANIC ATTACK
     Route: 048

REACTIONS (6)
  - ABDOMINAL PAIN UPPER [None]
  - ACTIVITIES OF DAILY LIVING IMPAIRED [None]
  - BEDRIDDEN [None]
  - GALLBLADDER DISORDER [None]
  - HEADACHE [None]
  - NAUSEA [None]
